FAERS Safety Report 8195874-5 (Version None)
Quarter: 2012Q1

REPORT INFORMATION
  Report Type: 
  Country: None (occurrence: None)
  Receive Date: 20120308
  Receipt Date: 20120307
  Transmission Date: 20120608
  Serious: Yes (Other)
  Sender: FDA-Public Use
  Company Number: US-ABBOTT-11P-163-0842743-00

PATIENT
  Sex: Female

DRUGS (2)
  1. ERYTHROMYCIN [Suspect]
     Dosage: 1 DOSE
     Dates: start: 19860101, end: 19860101
  2. ERYTHROMYCIN [Suspect]
     Indication: BRONCHITIS
     Dosage: 3 DOSES
     Route: 048
     Dates: start: 19790101, end: 19790101

REACTIONS (8)
  - CHOKING SENSATION [None]
  - DRY MOUTH [None]
  - DYSPHAGIA [None]
  - PRURITUS ALLERGIC [None]
  - DYSPNOEA [None]
  - NAUSEA [None]
  - URTICARIA [None]
  - ALLERGIC OEDEMA [None]
